FAERS Safety Report 7273176-9 (Version None)
Quarter: 2011Q1

REPORT INFORMATION
  Report Type: 
  Country: None (occurrence: None)
  Receive Date: 20110203
  Receipt Date: 20101101
  Transmission Date: 20110831
  Serious: No
  Sender: FDA-Public Use
  Company Number: US-ABBOTT-10P-163-0682705-00

PATIENT
  Sex: Male
  Weight: 16.344 kg

DRUGS (3)
  1. MIRALAX [Concomitant]
     Indication: CONSTIPATION
     Dosage: 1/2 CAP ONCE DAILY
  2. SYNTHROID [Suspect]
     Indication: AUTOIMMUNE THYROIDITIS
     Dates: start: 20070101
  3. SENA [Concomitant]
     Indication: CONSTIPATION

REACTIONS (1)
  - COELIAC DISEASE [None]
